FAERS Safety Report 23098259 (Version 1)
Quarter: 2023Q4

REPORT INFORMATION
  Report Type: Report from Study
  Country: US (occurrence: US)
  Receive Date: 20231023
  Receipt Date: 20231023
  Transmission Date: 20240110
  Serious: Yes (Death)
  Sender: FDA-Public Use
  Company Number: US-BAUSCH-BL-2023-000953

PATIENT
  Age: 80 Year
  Sex: Male

DRUGS (2)
  1. XIFAXAN [Suspect]
     Active Substance: RIFAXIMIN
     Indication: Product used for unknown indication
     Route: 048
  2. XIFAXAN [Suspect]
     Active Substance: RIFAXIMIN
     Dosage: CUTTING XIFAXAN IN HALF
     Route: 048
     Dates: end: 2023

REACTIONS (5)
  - Cardiac failure [Fatal]
  - Nephropathy [Fatal]
  - Wrong technique in product usage process [Unknown]
  - Product use issue [Unknown]
  - Product distribution issue [Unknown]
